FAERS Safety Report 15707877 (Version 1)
Quarter: 2018Q4

REPORT INFORMATION
  Report Type: Spontaneous
  Country: US (occurrence: US)
  Receive Date: 20181211
  Receipt Date: 20181211
  Transmission Date: 20190205
  Serious: Yes (Other)
  Sender: FDA-Public Use
  Company Number: US-UNICHEM PHARMACEUTICALS (USA) INC-UCM201811-000340

PATIENT
  Age: 40 Year
  Sex: Female
  Weight: 108.8 kg

DRUGS (9)
  1. LAMOTRIGINE. [Suspect]
     Active Substance: LAMOTRIGINE
  2. METFORMIN [Concomitant]
     Active Substance: METFORMIN HYDROCHLORIDE
     Indication: GLUCOSE TOLERANCE IMPAIRED
  3. LAMOTRIGINE. [Suspect]
     Active Substance: LAMOTRIGINE
     Dosage: 200 MG IN THE MORNING AND 200 MG WITH ONE TABLET OF 100 MG IN THE EVENING
  4. LAMOTRIGINE. [Suspect]
     Active Substance: LAMOTRIGINE
     Indication: EPILEPSY
     Dosage: 200 MG IN THE MORNING AND 200 MG IN THE EVENING
  5. LAMOTRIGINE. [Suspect]
     Active Substance: LAMOTRIGINE
  6. LAMOTRIGINE. [Suspect]
     Active Substance: LAMOTRIGINE
  7. LAMOTRIGINE. [Suspect]
     Active Substance: LAMOTRIGINE
  8. HYDROCHLOROTHIAZIDE. [Concomitant]
     Active Substance: HYDROCHLOROTHIAZIDE
     Indication: HYPERTENSION
  9. XANAX [Concomitant]
     Active Substance: ALPRAZOLAM
     Indication: ANXIETY
     Dosage: 0.25 MG 2 OR 3 TIMES A MONTH AS NEEDED

REACTIONS (1)
  - Generalised tonic-clonic seizure [Recovered/Resolved]
